FAERS Safety Report 9455245 (Version 1)
Quarter: 2013Q3

REPORT INFORMATION
  Report Type: Spontaneous
  Country: FR (occurrence: None)
  Receive Date: 20130711
  Receipt Date: 20130711
  Transmission Date: 20140515
  Serious: Yes (Hospitalization)
  Sender: FDA-Public Use
  Company Number: 221976

PATIENT
  Age: 44 Year
  Sex: Female
  Weight: 80 kg

DRUGS (3)
  1. INNOHEP (TINZAPARIN SODIUM) [Suspect]
     Indication: THROMBOSIS IN DEVICE
     Route: 050
     Dates: start: 20130506, end: 20130514
  2. INEXIUM (ESOMEPRAZOEL MAGNESIUM) (200 MG) [Concomitant]
  3. ARIXTRA (FONDAPARINUX SODIUM) [Concomitant]

REACTIONS (1)
  - Pulmonary embolism [None]
